FAERS Safety Report 9928336 (Version 1)
Quarter: 2014Q1

REPORT INFORMATION
  Report Type: Report from Study
  Country: NZ (occurrence: NZ)
  Receive Date: 20140227
  Receipt Date: 20140227
  Transmission Date: 20141002
  Serious: Yes (Other)
  Sender: FDA-Public Use
  Company Number: NZ-TEVA-464045ISR

PATIENT
  Age: 31 Year
  Sex: Female

DRUGS (2)
  1. COPAXONE [Suspect]
     Indication: MULTIPLE SCLEROSIS
     Route: 058
     Dates: start: 20100923, end: 20101201
  2. COPAXONE [Suspect]
     Route: 058
     Dates: start: 20140110

REACTIONS (3)
  - Blindness transient [Recovered/Resolved]
  - Deafness transitory [Recovered/Resolved]
  - Loss of consciousness [Recovered/Resolved]
